FAERS Safety Report 4843894-8 (Version None)
Quarter: 2005Q4

REPORT INFORMATION
  Report Type: 
  Country: None (occurrence: None)
  Receive Date: 20051129
  Receipt Date: 20051118
  Transmission Date: 20060501
  Serious: Yes (Death)
  Sender: FDA-Public Use
  Company Number: 200513970GDS

PATIENT
  Age: 69 Year
  Sex: Male

DRUGS (13)
  1. CIPRO [Suspect]
     Dosage: 400 MG, TOTAL DAILY, INTRAVENOUS
     Route: 042
  2. CEFAZOLIN SODIUM [Suspect]
     Dosage: 1 G, TOTAL DAILY, INTRAVENOUS
     Route: 042
  3. CALCIUM GLUCONATE [Concomitant]
  4. DALTEPARIN [Concomitant]
  5. DIGOXIN [Concomitant]
  6. DILTIAZEM HCL [Concomitant]
  7. HEPARIN [Concomitant]
  8. LEVOTHYROXINE SODIUM [Concomitant]
  9. METRONIDAZOLE [Concomitant]
  10. NITRO-DUR [Concomitant]
  11. PENICILLIN [Concomitant]
  12. CALCIUM GLUCONATE [Concomitant]
  13. CLOTRIMAZOLE [Concomitant]

REACTIONS (7)
  - DERMATITIS EXFOLIATIVE [None]
  - ERYTHEMA [None]
  - LIP ULCERATION [None]
  - PRURITUS [None]
  - RASH MACULO-PAPULAR [None]
  - SWELLING [None]
  - TOXIC EPIDERMAL NECROLYSIS [None]
